FAERS Safety Report 17475580 (Version 1)
Quarter: 2020Q1

REPORT INFORMATION
  Report Type: Report from Study
  Country: IN (occurrence: IN)
  Receive Date: 20200228
  Receipt Date: 20200228
  Transmission Date: 20200409
  Serious: Yes (Hospitalization)
  Sender: FDA-Public Use
  Company Number: IN-JNJFOC-20190726516

PATIENT
  Age: 50 Year
  Sex: Female
  Weight: 82.7 kg

DRUGS (12)
  1. METHOTREXATE. [Concomitant]
     Active Substance: METHOTREXATE
     Indication: AUTOIMMUNE DISORDER
     Route: 058
     Dates: start: 20181008, end: 20190118
  2. METHOTREXATE. [Concomitant]
     Active Substance: METHOTREXATE
     Route: 058
     Dates: start: 20190119, end: 20190224
  3. FOLIC ACID. [Concomitant]
     Active Substance: FOLIC ACID
     Route: 048
     Dates: start: 20181008
  4. BENFOTIAMINE [Concomitant]
     Active Substance: BENFOTIAMINE
     Indication: VITAMIN SUPPLEMENTATION
     Dosage: 1500 MCG 6/7 DAYS
     Route: 048
     Dates: start: 20181008, end: 20190714
  5. HYDROXYCHLOROQUINE [Concomitant]
     Active Substance: HYDROXYCHLOROQUINE
     Indication: AUTOIMMUNE DISORDER
     Route: 048
     Dates: start: 20181008
  6. METHYLPREDNISOLONE. [Concomitant]
     Active Substance: METHYLPREDNISOLONE
     Indication: INFLAMMATION
     Dosage: 4 MG HALF ONCE A DAY
     Route: 048
     Dates: start: 20181008, end: 20190714
  7. METHYLPREDNISOLONE. [Concomitant]
     Active Substance: METHYLPREDNISOLONE
     Dosage: 4 MG HALF ONCE A DAY
     Route: 048
     Dates: start: 20181008, end: 20190714
  8. METHOTREXATE. [Concomitant]
     Active Substance: METHOTREXATE
     Route: 058
     Dates: start: 20190225, end: 20190624
  9. CALCITRIOL. [Concomitant]
     Active Substance: CALCITRIOL
     Indication: MINERAL SUPPLEMENTATION
     Route: 048
     Dates: start: 20181008, end: 20190624
  10. SIMPONI [Suspect]
     Active Substance: GOLIMUMAB
     Indication: RHEUMATOID ARTHRITIS
     Dosage: 1 MONTH?ADMINISTERED TO RIGHT ARM (ANATOMICAL SITE OF ADMINISTRATION)
     Route: 058
     Dates: start: 20190629
  11. METHOTREXATE. [Concomitant]
     Active Substance: METHOTREXATE
     Route: 048
     Dates: start: 20190625, end: 20190714
  12. IBANDRONATE [Concomitant]
     Active Substance: IBANDRONATE SODIUM
     Indication: OSTEOPOROSIS
     Dosage: 150 EVERY MONTH
     Route: 048
     Dates: start: 20181008, end: 20190714

REACTIONS (1)
  - Abdominal wall abscess [Recovered/Resolved]

NARRATIVE: CASE EVENT DATE: 20190717
